FAERS Safety Report 25067023 (Version 1)
Quarter: 2025Q1

REPORT INFORMATION
  Report Type: Report from Study
  Country: US (occurrence: US)
  Receive Date: 20250312
  Receipt Date: 20250312
  Transmission Date: 20250409
  Serious: Yes (Hospitalization)
  Sender: ABBVIE
  Company Number: US-ABBVIE-6164800

PATIENT
  Age: 63 Year
  Sex: Female

DRUGS (1)
  1. HUMIRA [Suspect]
     Active Substance: ADALIMUMAB
     Indication: Rheumatoid arthritis
     Route: 058
     Dates: start: 20220104

REACTIONS (7)
  - Renal function test abnormal [Unknown]
  - Muscle strain [Unknown]
  - Ankle fracture [Recovering/Resolving]
  - Restless legs syndrome [Unknown]
  - Fall [Recovering/Resolving]
  - Mobility decreased [Unknown]
  - Osteoporosis [Unknown]

NARRATIVE: CASE EVENT DATE: 20231201
